FAERS Safety Report 24888386 (Version 1)
Quarter: 2025Q1

REPORT INFORMATION
  Report Type: Spontaneous
  Country: US (occurrence: US)
  Receive Date: 20250127
  Receipt Date: 20250127
  Transmission Date: 20250409
  Serious: Yes (Other)
  Sender: OCTAPHARMA
  Company Number: US-OCTA-2025000038

PATIENT
  Age: 68 Year
  Sex: Male

DRUGS (1)
  1. PROTHROMBIN COMPLEX CONCENTRATE [Suspect]
     Active Substance: COAGULATION FACTOR IX HUMAN\COAGULATION FACTOR VII HUMAN\COAGULATION FACTOR X HUMAN\PROTEIN C\PROTEI
     Indication: Pericardial drainage
     Route: 042

REACTIONS (3)
  - Venous thrombosis [Unknown]
  - Pulmonary embolism [Unknown]
  - Peripheral artery occlusion [Unknown]
